FAERS Safety Report 8482906-X (Version None)
Quarter: 2012Q3

REPORT INFORMATION
  Report Type: 
  Country: None (occurrence: None)
  Receive Date: 20120702
  Receipt Date: 20120621
  Transmission Date: 20120928
  Serious: Yes (Hospitalization, Other)
  Sender: FDA-Public Use
  Company Number: US-ELI_LILLY_AND_COMPANY-US201112006909

PATIENT
  Sex: Female
  Weight: 51.3 kg

DRUGS (10)
  1. LEVOTHYROXINE SODIUM [Concomitant]
     Dosage: 100 UG, QD
     Route: 048
  2. OS-CAL 500 + D [Concomitant]
     Dosage: 700 MG, BID
     Route: 048
  3. PREVIDENT [Concomitant]
     Dosage: 1.1 %, UNK
     Route: 004
  4. ASCORBIC ACID [Concomitant]
     Dosage: 500 MG, UNK
     Route: 048
  5. FORTEO [Suspect]
     Dosage: 20 UG, QD
     Route: 058
  6. COQ-10 [Concomitant]
     Dosage: 10 MG, UNK
     Route: 048
  7. RESTASIS [Concomitant]
     Dosage: 0.05 %, BID
     Route: 047
  8. FORTEO [Suspect]
     Dosage: 20 UG, QD
     Route: 058
  9. CALCIUM [Concomitant]
  10. FORTEO [Suspect]
     Indication: OSTEOPOROSIS
     Dosage: 20 UG, QD
     Route: 058
     Dates: start: 20111001

REACTIONS (8)
  - PULMONARY EMBOLISM [None]
  - BRONCHIECTASIS [None]
  - SJOGREN'S SYNDROME [None]
  - INSOMNIA [None]
  - PNEUMONIA [None]
  - MALAISE [None]
  - CHRONIC OBSTRUCTIVE PULMONARY DISEASE [None]
  - HYPERCALCAEMIA [None]
